FAERS Safety Report 21041287 (Version 1)
Quarter: 2022Q3

REPORT INFORMATION
  Report Type: Spontaneous
  Country: US (occurrence: US)
  Receive Date: 20220705
  Receipt Date: 20220705
  Transmission Date: 20221027
  Serious: No
  Sender: FDA-Public Use
  Company Number: US-BRISTOL-MYERS SQUIBB COMPANY-2022-055264

PATIENT
  Age: 73 Year
  Sex: Male

DRUGS (4)
  1. NIVOLUMAB [Suspect]
     Active Substance: NIVOLUMAB
     Indication: Metastasis
     Dosage: STRENGTH: 100 MG VIAL.
     Route: 042
     Dates: start: 20220415, end: 20220505
  2. NIVOLUMAB [Suspect]
     Active Substance: NIVOLUMAB
     Indication: Malignant melanoma
  3. YERVOY [Suspect]
     Active Substance: IPILIMUMAB
     Indication: Metastasis
     Dosage: STRENGTH: 50 MG VIAL.
     Route: 042
     Dates: start: 20220415, end: 20220505
  4. YERVOY [Suspect]
     Active Substance: IPILIMUMAB
     Indication: Malignant melanoma

REACTIONS (1)
  - Nausea [Unknown]
